FAERS Safety Report 24177679 (Version 1)
Quarter: 2024Q3

REPORT INFORMATION
  Report Type: Spontaneous
  Country: CA (occurrence: CA)
  Receive Date: 20240806
  Receipt Date: 20240806
  Transmission Date: 20241016
  Serious: Yes (Other)
  Sender: REGENERON
  Company Number: CA-BAYER-2024A110700

PATIENT

DRUGS (4)
  1. EYLEA [Suspect]
     Active Substance: AFLIBERCEPT
     Dosage: UNK, 40 MG/ML
     Route: 031
  2. BROLUCIZUMAB [Suspect]
     Active Substance: BROLUCIZUMAB
     Indication: Polypoidal choroidal vasculopathy
     Dosage: UNK
     Route: 031
  3. BROLUCIZUMAB [Suspect]
     Active Substance: BROLUCIZUMAB
     Dosage: UNK
     Route: 031
  4. LUCENTIS [Suspect]
     Active Substance: RANIBIZUMAB
     Indication: Polypoidal choroidal vasculopathy
     Dosage: UNK
     Route: 031

REACTIONS (3)
  - Subretinal fluid [Unknown]
  - Product use issue [Unknown]
  - Off label use [Unknown]
